FAERS Safety Report 14718202 (Version 2)
Quarter: 2018Q3

REPORT INFORMATION
  Report Type: Report from Study
  Country: US (occurrence: US)
  Receive Date: 20180404
  Receipt Date: 20180709
  Transmission Date: 20181010
  Serious: No
  Sender: FDA-Public Use
  Company Number: US-SA-2018SA068310

PATIENT
  Age: 32 Year
  Sex: Male
  Weight: 81.6 kg

DRUGS (2)
  1. DUPILUMAB [Suspect]
     Active Substance: DUPILUMAB
     Dosage: 300 MG, QOW
     Route: 058
     Dates: start: 20171114
  2. DUPILUMAB [Suspect]
     Active Substance: DUPILUMAB
     Indication: DERMATITIS ATOPIC
     Dosage: 600 MG, 1X
     Route: 058
     Dates: start: 20171031

REACTIONS (6)
  - Influenza [Unknown]
  - Eye pruritus [Unknown]
  - Dry eye [Unknown]
  - Nasopharyngitis [Unknown]
  - Ear pain [Unknown]
  - Malaise [Unknown]

NARRATIVE: CASE EVENT DATE: 20171031
